FAERS Safety Report 6865379-X (Version None)
Quarter: 2010Q3

REPORT INFORMATION
  Report Type: 
  Country: None (occurrence: None)
  Receive Date: 20100721
  Receipt Date: 20080423
  Transmission Date: 20110219
  Serious: No
  Sender: FDA-Public Use
  Company Number: US-PFIZER INC-2008035580

PATIENT
  Sex: Male
  Weight: 158.8 kg

DRUGS (7)
  1. CHANTIX [Suspect]
     Indication: SMOKING CESSATION THERAPY
     Dates: start: 20080101
  2. ZOLOFT [Concomitant]
  3. HYDROCHLOROTHIAZIDE [Concomitant]
  4. CRESTOR [Concomitant]
  5. PLAVIX [Concomitant]
  6. ATENOLOL [Concomitant]
  7. ACETYLSALICYLIC ACID [Concomitant]

REACTIONS (2)
  - FATIGUE [None]
  - RESTLESSNESS [None]
